FAERS Safety Report 10239351 (Version 1)
Quarter: 2014Q2

REPORT INFORMATION
  Report Type: Spontaneous
  Country: AT (occurrence: AT)
  Receive Date: 20140616
  Receipt Date: 20140616
  Transmission Date: 20141212
  Serious: Yes (Other)
  Sender: FDA-Public Use
  Company Number: AT-BAYER-2014-086680

PATIENT
  Sex: Male

DRUGS (1)
  1. XOFIGO [Suspect]
     Indication: HORMONE-REFRACTORY PROSTATE CANCER

REACTIONS (1)
  - Cerebral haemorrhage [None]
